FAERS Safety Report 11456100 (Version 1)
Quarter: 2015Q3

REPORT INFORMATION
  Report Type: Spontaneous
  Country: US (occurrence: US)
  Receive Date: 20150903
  Receipt Date: 20150903
  Transmission Date: 20151125
  Serious: No
  Sender: FDA-Public Use
  Company Number: US-PFIZER INC-2015283085

PATIENT
  Age: 77 Year
  Sex: Male
  Weight: 104 kg

DRUGS (6)
  1. ADVIL [Suspect]
     Active Substance: IBUPROFEN
     Indication: INFLAMMATION
     Dosage: 3 ADVIL, 8 HOURS APART , 3X/DAY
     Dates: start: 201508
  2. ADVIL [Suspect]
     Active Substance: IBUPROFEN
     Indication: INFLAMMATION
     Dosage: 3 DF, 3X/DAY
     Dates: start: 201508
  3. ADVIL [Suspect]
     Active Substance: IBUPROFEN
     Indication: ARTHRALGIA
     Dosage: 2 DF, 2X/DAY
     Route: 048
     Dates: start: 201508
  4. CORTISONE [Concomitant]
     Active Substance: CORTISONE\HYDROCORTISONE
     Indication: INFLAMMATION
  5. ADVIL [Suspect]
     Active Substance: IBUPROFEN
     Indication: ARTHRITIS
     Dosage: 2 DF, 2X/DAY
     Route: 048
     Dates: start: 201508
  6. PREDNISONE. [Concomitant]
     Active Substance: PREDNISONE
     Indication: INFLAMMATION
     Dosage: 20 MG, 1X/DAY, ONE TABLET BY MOUTH
     Route: 048
     Dates: start: 201508

REACTIONS (7)
  - Musculoskeletal stiffness [Unknown]
  - Prescribed overdose [Unknown]
  - Limb discomfort [Unknown]
  - Paraesthesia [Unknown]
  - Drug ineffective for unapproved indication [Unknown]
  - Hypoaesthesia [Unknown]
  - Feeling abnormal [Unknown]

NARRATIVE: CASE EVENT DATE: 201508
